FAERS Safety Report 4327648-7 (Version None)
Quarter: 2004Q1

REPORT INFORMATION
  Report Type: 
  Country: None (occurrence: None)
  Receive Date: 20040331
  Receipt Date: 20040322
  Transmission Date: 20041129
  Serious: Yes (Life-Threatening, Hospitalization)
  Sender: FDA-Public Use
  Company Number: PHBS2004MX04011

PATIENT
  Age: 68 Year
  Sex: Female

DRUGS (1)
  1. TRILEPTAL [Suspect]

REACTIONS (4)
  - ERYTHEMA [None]
  - EYELID OEDEMA [None]
  - PETECHIAE [None]
  - SKIN NECROSIS [None]
